FAERS Safety Report 25178783 (Version 1)
Quarter: 2025Q2

REPORT INFORMATION
  Report Type: Spontaneous
  Country: BE (occurrence: BE)
  Receive Date: 20250409
  Receipt Date: 20250409
  Transmission Date: 20250716
  Serious: Yes (Other)
  Sender: JAZZ
  Company Number: None

PATIENT

DRUGS (4)
  1. EPIDIOLEX [Suspect]
     Active Substance: CANNABIDIOL
     Indication: Intentional self-injury
  2. PRAZEPAM [Suspect]
     Active Substance: PRAZEPAM
     Indication: Intentional self-injury
  3. XANAX [Suspect]
     Active Substance: ALPRAZOLAM
     Indication: Intentional self-injury
  4. FLURAZEPAM HYDROCHLORIDE [Suspect]
     Active Substance: FLURAZEPAM HYDROCHLORIDE
     Indication: Intentional self-injury

REACTIONS (2)
  - Somnolence [Not Recovered/Not Resolved]
  - Intentional product misuse [Not Recovered/Not Resolved]
